FAERS Safety Report 16383571 (Version 1)
Quarter: 2019Q2

REPORT INFORMATION
  Report Type: Spontaneous
  Country: US (occurrence: US)
  Receive Date: 20190603
  Receipt Date: 20190603
  Transmission Date: 20190711
  Serious: Yes (Other)
  Sender: FDA-Public Use
  Company Number: US-SA-2017SA252194

PATIENT
  Age: 60 Year
  Sex: Female
  Weight: 63 kg

DRUGS (8)
  1. ZANTAC [Concomitant]
     Active Substance: RANITIDINE HYDROCHLORIDE
     Dosage: UNK UNK,UNK
     Route: 065
  2. LEVAQUIN [Concomitant]
     Active Substance: LEVOFLOXACIN
     Route: 065
  3. TAXOTERE [Suspect]
     Active Substance: DOCETAXEL
     Dosage: UNK UNK,Q3W
     Route: 042
     Dates: start: 200709, end: 200709
  4. PARACETAMOL [Concomitant]
     Active Substance: ACETAMINOPHEN
     Dosage: UNK UNK,UNK
     Route: 065
  5. TAXOTERE [Suspect]
     Active Substance: DOCETAXEL
     Indication: BREAST CANCER FEMALE
     Dosage: UNK UNK,Q3W
     Route: 042
     Dates: start: 20070615, end: 20070615
  6. TAXOTERE [Suspect]
     Active Substance: DOCETAXEL
     Dosage: UNK UNK,Q3W
     Route: 042
     Dates: start: 200711, end: 200711
  7. ADRIAMYCIN [Concomitant]
     Active Substance: DOXORUBICIN HYDROCHLORIDE
     Route: 065
  8. NEOSAR [Concomitant]
     Active Substance: CYCLOPHOSPHAMIDE
     Route: 065

REACTIONS (3)
  - Impaired quality of life [Unknown]
  - Alopecia [Not Recovered/Not Resolved]
  - Pain [Unknown]
